FAERS Safety Report 23142595 (Version 2)
Quarter: 2024Q4

REPORT INFORMATION
  Report Type: Spontaneous
  Country: GB (occurrence: GB)
  Receive Date: 20231103
  Receipt Date: 20241011
  Transmission Date: 20250115
  Serious: Yes (Other)
  Sender: ELI LILLY AND CO
  Company Number: GB-LDELTA-NLLD0038591

PATIENT
  Age: 57 Year
  Sex: Male

DRUGS (5)
  1. ERBITUX [Suspect]
     Active Substance: CETUXIMAB
     Indication: Adenocarcinoma of colon
     Dosage: UNK UNK, UNKNOWN
     Route: 065
     Dates: start: 20220420, end: 20220625
  2. FLUOROURACIL [Suspect]
     Active Substance: FLUOROURACIL
     Indication: Adenocarcinoma of colon
     Dosage: UNK UNK, UNKNOWN
     Route: 065
     Dates: start: 20220420, end: 20220625
  3. IRINOTECAN [Suspect]
     Active Substance: IRINOTECAN
     Indication: Adenocarcinoma of colon
     Dosage: UNK UNK, UNKNOWN
     Route: 065
     Dates: start: 20220420, end: 20220625
  4. CLOZAPINE [Suspect]
     Active Substance: CLOZAPINE
     Indication: Schizophrenia
     Dosage: 450 MG, DAILY
     Route: 048
     Dates: start: 20090203, end: 20220509
  5. CLOZAPINE [Suspect]
     Active Substance: CLOZAPINE
     Dosage: 450 MG, DAILY
     Route: 048
     Dates: start: 202205

REACTIONS (6)
  - Adenocarcinoma of colon [Not Recovered/Not Resolved]
  - Adenocarcinoma of colon [Not Recovered/Not Resolved]
  - Neutrophil count decreased [Recovered/Resolved]
  - White blood cell count decreased [Recovered/Resolved]
  - Contraindicated product administered [Not Recovered/Not Resolved]
  - Off label use [Not Recovered/Not Resolved]

NARRATIVE: CASE EVENT DATE: 20220420
